FAERS Safety Report 12784074 (Version 1)
Quarter: 2016Q3

REPORT INFORMATION
  Report Type: Spontaneous
  Country: US (occurrence: US)
  Receive Date: 20160927
  Receipt Date: 20160927
  Transmission Date: 20161109
  Serious: No
  Sender: FDA-Public Use
  Company Number: US-GLAXOSMITHKLINE-US2016139910

PATIENT
  Sex: Female

DRUGS (1)
  1. MUPIROCIN CALCIUM CREAM [Suspect]
     Active Substance: MUPIROCIN CALCIUM
     Indication: PRODUCT USED FOR UNKNOWN INDICATION
     Dosage: UNK

REACTIONS (4)
  - Skin irritation [Unknown]
  - Acne [Unknown]
  - Pruritus [Unknown]
  - Seborrhoea [Unknown]
